FAERS Safety Report 4599255-2 (Version None)
Quarter: 2005Q1

REPORT INFORMATION
  Report Type: 
  Country: None (occurrence: None)
  Receive Date: 20050302
  Receipt Date: 20050302
  Transmission Date: 20050727
  Serious: No
  Sender: FDA-Public Use
  Company Number: None

PATIENT
  Age: 14 Year
  Sex: Male

DRUGS (2)
  1. INDOMETHACIN ER CAPS A269 [Suspect]
     Indication: ANKYLOSING SPONDYLITIS
     Dosage: 1 CAP PO DAILY
     Route: 048
     Dates: start: 20050222
  2. INDOMETHACIN ER CAPS A269 [Suspect]
     Indication: BACK PAIN
     Dosage: 1 CAP PO DAILY
     Route: 048
     Dates: start: 20050222

REACTIONS (2)
  - DRUG INEFFECTIVE [None]
  - PHARMACEUTICAL PRODUCT COMPLAINT [None]
